FAERS Safety Report 4853928-2 (Version None)
Quarter: 2005Q4

REPORT INFORMATION
  Report Type: 
  Country: None (occurrence: None)
  Receive Date: 20051213
  Receipt Date: 20051130
  Transmission Date: 20060501
  Serious: Yes (Hospitalization, Other)
  Sender: FDA-Public Use
  Company Number: HQWYE793201DEC05

PATIENT
  Age: 76 Year
  Sex: Male
  Weight: 79.4 kg

DRUGS (12)
  1. MYLOTARG [Suspect]
     Indication: ACUTE MYELOID LEUKAEMIA
     Dosage: A SINGLE 6 MG DOSE, INTRAVENOUS
     Route: 042
     Dates: start: 20051128, end: 20051128
  2. MYLOTARG [Suspect]
     Indication: MYELODYSPLASTIC SYNDROME
     Dosage: A SINGLE 6 MG DOSE, INTRAVENOUS
     Route: 042
     Dates: start: 20051128, end: 20051128
  3. ARSENIC TRIOXIDE (ARSENIC TRIOXIDE,) [Suspect]
     Indication: ACUTE MYELOID LEUKAEMIA
     Dosage: A SINGLE 20 MG DOSE, INTRAVENOUS
     Route: 042
     Dates: start: 20051128, end: 20051128
  4. ARSENIC TRIOXIDE (ARSENIC TRIOXIDE,) [Suspect]
     Indication: MYELODYSPLASTIC SYNDROME
     Dosage: A SINGLE 20 MG DOSE, INTRAVENOUS
     Route: 042
     Dates: start: 20051128, end: 20051128
  5. ATENOLOL [Concomitant]
  6. SYNTHROID [Concomitant]
  7. PRILOSEC [Concomitant]
  8. PROSCAR [Concomitant]
  9. MULTIVITAMINS, PLAIN (MULTIVITAMINS, PLAIN) [Concomitant]
  10. LOTREL [Concomitant]
  11. FLOMAX [Concomitant]
  12. LEVAQUIN [Concomitant]

REACTIONS (2)
  - FEBRILE NEUTROPENIA [None]
  - WHITE BLOOD CELL COUNT DECREASED [None]
